FAERS Safety Report 7177591-3 (Version None)
Quarter: 2010Q4

REPORT INFORMATION
  Report Type: 
  Country: None (occurrence: None)
  Receive Date: 20101123
  Receipt Date: 20101001
  Transmission Date: 20110411
  Serious: No
  Sender: FDA-Public Use
  Company Number: 019765

PATIENT
  Sex: Female
  Weight: 41.7 kg

DRUGS (5)
  1. CIMZIA [Suspect]
     Indication: CROHN'S DISEASE
     Dosage: (400 MG 1X/2 WEEKS SUBCUTANEOUS)
     Route: 058
     Dates: start: 20100831, end: 20100914
  2. PREDNISONE [Concomitant]
  3. PENTASA [Concomitant]
  4. FLAGYL [Concomitant]
  5. ZOLOFT [Concomitant]

REACTIONS (8)
  - ABDOMINAL DISTENSION [None]
  - ABDOMINAL PAIN [None]
  - BLEPHAROSPASM [None]
  - DISTURBANCE IN ATTENTION [None]
  - MIGRAINE [None]
  - MYALGIA [None]
  - OROPHARYNGEAL PAIN [None]
  - VISION BLURRED [None]
